FAERS Safety Report 4401693-5 (Version None)
Quarter: 2004Q3

REPORT INFORMATION
  Report Type: 
  Country: None (occurrence: None)
  Receive Date: 20040719
  Receipt Date: 20040706
  Transmission Date: 20050211
  Serious: Yes (Hospitalization)
  Sender: FDA-Public Use
  Company Number: ES-GLAXOSMITHKLINE-B0339050A

PATIENT
  Age: 37 Year
  Sex: Female
  Weight: 95 kg

DRUGS (2)
  1. VENTOLIN [Suspect]
     Indication: BRONCHITIS CHRONIC
     Dosage: 100MCG AS REQUIRED
     Route: 055
     Dates: start: 20040604, end: 20040604
  2. BUDESONIDE [Suspect]
     Indication: BRONCHITIS CHRONIC
     Dosage: 100MCG PER DAY
     Route: 055
     Dates: start: 20040501, end: 20040604

REACTIONS (9)
  - EXANTHEM [None]
  - LEUKOCYTOSIS [None]
  - MALAISE [None]
  - NEUTROPHIL COUNT INCREASED [None]
  - PRURITUS [None]
  - PURPURA [None]
  - PYREXIA [None]
  - RASH PRURITIC [None]
  - SKIN DESQUAMATION [None]
